FAERS Safety Report 18846626 (Version 1)
Quarter: 2021Q1

REPORT INFORMATION
  Report Type: Spontaneous
  Country: US (occurrence: US)
  Receive Date: 20210204
  Receipt Date: 20210204
  Transmission Date: 20210419
  Serious: Yes (Other)
  Sender: FDA-Public Use
  Company Number: US-PFIZER INC-2021092753

PATIENT
  Age: 83 Year
  Sex: Male

DRUGS (2)
  1. VYNDAQEL [Suspect]
     Active Substance: TAFAMIDIS MEGLUMINE
     Indication: CARDIAC AMYLOIDOSIS
     Dosage: UNK
     Dates: start: 20210108
  2. DIFLUNISAL. [Suspect]
     Active Substance: DIFLUNISAL
     Indication: ARTHRALGIA
     Dosage: UNK

REACTIONS (4)
  - Altered state of consciousness [Unknown]
  - Coordination abnormal [Unknown]
  - Arthralgia [Unknown]
  - Paraesthesia [Unknown]
